FAERS Safety Report 4620101-2 (Version None)
Quarter: 2005Q1

REPORT INFORMATION
  Report Type: 
  Country: None (occurrence: None)
  Receive Date: 20050328
  Receipt Date: 20050314
  Transmission Date: 20050727
  Serious: Yes (Hospitalization)
  Sender: FDA-Public Use
  Company Number: CH-AMGEN-UK062337

PATIENT
  Sex: Female
  Weight: 52 kg

DRUGS (1)
  1. DARBEPOETIN ALFA [Suspect]
     Indication: ANAEMIA OF MALIGNANT DISEASE
     Route: 058
     Dates: start: 20031204

REACTIONS (4)
  - CHEST PAIN [None]
  - LUNG ABSCESS [None]
  - PNEUMONIA NECROTISING [None]
  - STAPHYLOCOCCAL INFECTION [None]
